FAERS Safety Report 7155787-4 (Version None)
Quarter: 2010Q4

REPORT INFORMATION
  Report Type: 
  Country: None (occurrence: None)
  Receive Date: 20101214
  Receipt Date: 20101207
  Transmission Date: 20110411
  Serious: Yes (Other)
  Sender: FDA-Public Use
  Company Number: US-B.I. PHARMACEUTICALS,INC./RIDGEFIELD-2010-BP-09282BP

PATIENT
  Sex: Female
  Weight: 80 kg

DRUGS (7)
  1. AGGRENOX [Suspect]
     Route: 048
  2. LEVOTHYROXINE [Concomitant]
     Dosage: 50 MCG
  3. LOVASTATIN [Concomitant]
     Dosage: 40 MG
  4. FOSAMAX [Concomitant]
     Dosage: 70 MG
  5. DEPAMIDE [Concomitant]
     Dosage: 2.5 MG
  6. FLONASE [Concomitant]
  7. NIFEDIPINE [Concomitant]
     Dosage: 30 MG

REACTIONS (1)
  - CEREBROVASCULAR ACCIDENT [None]
